FAERS Safety Report 11969877 (Version 3)
Quarter: 2016Q1

REPORT INFORMATION
  Report Type: Spontaneous
  Country: US (occurrence: US)
  Receive Date: 20160128
  Receipt Date: 20160328
  Transmission Date: 20160526
  Serious: Yes (Death)
  Sender: FDA-Public Use
  Company Number: US-OTSUKA-2016_002161

PATIENT
  Age: 83 Year
  Sex: Female

DRUGS (2)
  1. SAMSCA [Suspect]
     Active Substance: TOLVAPTAN
     Indication: INAPPROPRIATE ANTIDIURETIC HORMONE SECRETION
  2. SAMSCA [Suspect]
     Active Substance: TOLVAPTAN
     Indication: HYPONATRAEMIA
     Dosage: 15 MG, QOD
     Route: 048
     Dates: start: 201507

REACTIONS (2)
  - Glioblastoma multiforme [Fatal]
  - Inappropriate schedule of drug administration [Unknown]

NARRATIVE: CASE EVENT DATE: 201507
